FAERS Safety Report 5709850-2 (Version None)
Quarter: 2008Q2

REPORT INFORMATION
  Report Type: 
  Country: None (occurrence: None)
  Receive Date: 20080418
  Receipt Date: 20061211
  Transmission Date: 20081010
  Serious: No
  Sender: FDA-Public Use
  Company Number: US-ASTRAZENECA-2006UW27400

PATIENT
  Age: 90 Year
  Sex: Male
  Weight: 72.6 kg

DRUGS (4)
  1. TOPROL-XL [Suspect]
     Indication: CARDIAC FAILURE
     Route: 048
  2. TOPROL-XL [Suspect]
     Route: 048
     Dates: start: 20061207
  3. DIURETIC [Concomitant]
  4. MULTI-VITAMIN [Concomitant]

REACTIONS (1)
  - DEHYDRATION [None]
